FAERS Safety Report 4666056-6 (Version None)
Quarter: 2005Q2

REPORT INFORMATION
  Report Type: 
  Country: None (occurrence: None)
  Receive Date: 20050519
  Receipt Date: 20050511
  Transmission Date: 20051028
  Serious: Yes (Other)
  Sender: FDA-Public Use
  Company Number: US-ROCHE-404676

PATIENT
  Age: 73 Year
  Sex: Female
  Weight: 74.4 kg

DRUGS (4)
  1. XENICAL [Suspect]
     Indication: OBESITY
     Route: 048
     Dates: start: 20050415
  2. XENICAL [Suspect]
     Route: 048
     Dates: start: 20021230
  3. ZOCOR [Concomitant]
     Route: 048
  4. SYNTHROID [Concomitant]
     Route: 048

REACTIONS (2)
  - DIARRHOEA [None]
  - NON-HODGKIN'S LYMPHOMA [None]
